FAERS Safety Report 14924182 (Version 1)
Quarter: 2018Q2

REPORT INFORMATION
  Report Type: Spontaneous
  Country: DE (occurrence: DE)
  Receive Date: 20180522
  Receipt Date: 20180522
  Transmission Date: 20180711
  Serious: Yes (Hospitalization)
  Sender: FDA-Public Use
  Company Number: DE-PFIZER INC-2018201776

PATIENT
  Age: 68 Year
  Sex: Male
  Weight: 73 kg

DRUGS (17)
  1. SIMVASTATIN. [Concomitant]
     Active Substance: SIMVASTATIN
     Dosage: 20 MG, 1X/DAY
     Route: 048
  2. METOPROLOL. [Concomitant]
     Active Substance: METOPROLOL
     Dosage: 95 MG, 2X/DAY
     Route: 048
  3. PANTOPRAZOL [Concomitant]
     Active Substance: PANTOPRAZOLE SODIUM
     Dosage: 40 MG, 1X/DAY
     Route: 048
  4. IRINOTECAN HCL [Suspect]
     Active Substance: IRINOTECAN HYDROCHLORIDE
     Dosage: 90 MG/M2, ACCORDING TO SCHEME
     Route: 042
  5. DEXAMETHASONE. [Concomitant]
     Active Substance: DEXAMETHASONE
     Dosage: 8 MG, ACCORDING TO SCHEME
     Route: 048
  6. ONDANSETRON [Concomitant]
     Active Substance: ONDANSETRON
     Dosage: 8 MG, ACCORDING TO SCHEME
     Route: 048
  7. LOPERAMIDE [Concomitant]
     Active Substance: LOPERAMIDE
     Dosage: 2 MG, AS NEEDED
     Route: 048
  8. IVABRADINE [Concomitant]
     Active Substance: IVABRADINE
     Dosage: 5 MG, 1X/DAY
     Route: 048
  9. ALLOPURINOL. [Concomitant]
     Active Substance: ALLOPURINOL
     Dosage: 150 MG, 1X/DAY
     Route: 048
  10. FUROSEMIDE. [Concomitant]
     Active Substance: FUROSEMIDE
     Dosage: 40 MG, 1X/DAY
     Route: 048
  11. ACETYLSALICYLSAEURE [Concomitant]
     Active Substance: ASPIRIN
     Dosage: 100 MG, 1X/DAY
     Route: 048
  12. NATRIUMHYDROGENCARBONAT [Concomitant]
     Active Substance: SODIUM BICARBONATE
     Dosage: 1 G, 1X/DAY
     Route: 048
  13. METOCLOPRAMIDE. [Concomitant]
     Active Substance: METOCLOPRAMIDE
     Dosage: 10 MG, ACCORDING TO SCHEME
     Route: 048
  14. CALCIUM FOLINATE [Suspect]
     Active Substance: LEUCOVORIN CALCIUM
     Dosage: UNK
     Route: 042
  15. FLUOROURACIL. [Suspect]
     Active Substance: FLUOROURACIL
     Dosage: 2400 MG/M2, ACCORDING TO SCHEME
     Route: 042
  16. CALCITRIOL. [Concomitant]
     Active Substance: CALCITRIOL
     Dosage: 0.25 UG, 1X/DAY
     Route: 048
  17. HYPROMELLOSE [Concomitant]
     Active Substance: HYPROMELLOSES
     Dosage: 1 GTT , 3X
     Route: 031

REACTIONS (5)
  - Pyrexia [Unknown]
  - General physical health deterioration [Unknown]
  - Hyperhidrosis [Unknown]
  - Pain [Unknown]
  - Febrile infection [Unknown]
